FAERS Safety Report 8242612-3 (Version None)
Quarter: 2012Q1

REPORT INFORMATION
  Report Type: 
  Country: None (occurrence: None)
  Receive Date: 20120329
  Receipt Date: 20120323
  Transmission Date: 20120608
  Serious: Yes (Hospitalization)
  Sender: FDA-Public Use
  Company Number: PHEH2012US006716

PATIENT
  Sex: Female

DRUGS (2)
  1. GILENYA [Suspect]
     Indication: MULTIPLE SCLEROSIS
     Dosage: 0.5 MG, QD
     Route: 048
  2. LISINOPRIL [Concomitant]

REACTIONS (6)
  - BLOOD POTASSIUM DECREASED [None]
  - STRESS [None]
  - HEART RATE DECREASED [None]
  - PANIC ATTACK [None]
  - PALPITATIONS [None]
  - BLOOD PRESSURE INCREASED [None]
